FAERS Safety Report 21259971 (Version 1)
Quarter: 2022Q3

REPORT INFORMATION
  Report Type: Report from Study
  Country: MX (occurrence: MX)
  Receive Date: 20220826
  Receipt Date: 20220826
  Transmission Date: 20221027
  Serious: Yes (Other)
  Sender: FDA-Public Use
  Company Number: MX-UCBSA-2022048731

PATIENT
  Age: 41 Year
  Sex: Male

DRUGS (18)
  1. LACOSAMIDE [Suspect]
     Active Substance: LACOSAMIDE
     Indication: Epilepsy
     Dosage: 100MG PER DAY
     Route: 048
  2. LACOSAMIDE [Suspect]
     Active Substance: LACOSAMIDE
     Dosage: 200MG PER DAY
     Route: 048
  3. LACOSAMIDE [Suspect]
     Active Substance: LACOSAMIDE
     Dosage: 300MG PER DAY
     Route: 048
  4. KEPPRA [Suspect]
     Active Substance: LEVETIRACETAM
     Indication: Epilepsy
     Dosage: 500MG
     Route: 048
  5. BRIVIACT [Suspect]
     Active Substance: BRIVARACETAM
     Indication: Epilepsy
     Dosage: 25 MILLIGRAM, 4X/DAY (QID)
     Route: 048
     Dates: start: 202208
  6. ESCITALOPRAM [Concomitant]
     Active Substance: ESCITALOPRAM OXALATE
     Indication: Antidepressant therapy
  7. CLOPSINE [Concomitant]
     Indication: Schizophrenia
  8. LEVETIRACETAM [Concomitant]
     Active Substance: LEVETIRACETAM
     Indication: Partial seizures
  9. PREGABALIN [Concomitant]
     Active Substance: PREGABALIN
     Indication: Complex regional pain syndrome
  10. DULOXETINE [Concomitant]
     Active Substance: DULOXETINE
     Indication: Pain
  11. QUETIAPINE [Concomitant]
     Active Substance: QUETIAPINE
     Indication: Sleep disorder
  12. MIRTAZAPINE [Concomitant]
     Active Substance: MIRTAZAPINE
     Indication: Antidepressant therapy
  13. CLONAZEPAM [Concomitant]
     Active Substance: CLONAZEPAM
     Indication: Sleep disorder
  14. ZOLPIDEM TARTRATE [Concomitant]
     Active Substance: ZOLPIDEM TARTRATE
     Indication: Sleep disorder
  15. BIPERIDEN [Concomitant]
     Active Substance: BIPERIDEN
     Indication: Tremor
  16. LEVOMEPROMAZINE HYDROCHLORIDE [Concomitant]
     Active Substance: LEVOMEPROMAZINE HYDROCHLORIDE
     Indication: Partial seizures
  17. HALOPERIDOL [Concomitant]
     Active Substance: HALOPERIDOL
     Indication: Partial seizures
  18. IVERMECTIN [Concomitant]
     Active Substance: IVERMECTIN
     Indication: COVID-19

REACTIONS (10)
  - Schizophrenia [Unknown]
  - Partial seizures [Unknown]
  - Tremor [Unknown]
  - Insomnia [Recovering/Resolving]
  - Irritability [Unknown]
  - Anger [Unknown]
  - Pain [Recovering/Resolving]
  - Depression [Unknown]
  - COVID-19 [Recovered/Resolved]
  - Off label use [Unknown]

NARRATIVE: CASE EVENT DATE: 20220705
